FAERS Safety Report 16910859 (Version 1)
Quarter: 2019Q4

REPORT INFORMATION
  Report Type: Spontaneous
  Country: US (occurrence: US)
  Receive Date: 20191012
  Receipt Date: 20191012
  Transmission Date: 20200122
  Serious: No
  Sender: FDA-Public Use
  Company Number: US-BION-008063

PATIENT

DRUGS (1)
  1. PROGESTERONE UNKNOWN CAPSULE 100 AND 200 MG [Suspect]
     Active Substance: PROGESTERONE
     Indication: PRODUCT USED FOR UNKNOWN INDICATION
     Dosage: STRENGTH: 100 AND 200 MG
     Route: 067

REACTIONS (1)
  - Incorrect route of product administration [Not Recovered/Not Resolved]
